FAERS Safety Report 6096628-6 (Version None)
Quarter: 2009Q1

REPORT INFORMATION
  Report Type: 
  Country: None (occurrence: None)
  Receive Date: 20090227
  Receipt Date: 20090217
  Transmission Date: 20090719
  Serious: Yes (Hospitalization)
  Sender: FDA-Public Use
  Company Number: FR-SOLVAY-00209000985

PATIENT
  Age: 84 Year
  Sex: Male

DRUGS (9)
  1. COVERSYL 2 MG [Suspect]
     Indication: HYPERTENSION
     Dosage: DAILY DOSE: 2 MILLIGRAM(S)
     Route: 048
  2. LASIX [Concomitant]
     Indication: DRUG USE FOR UNKNOWN INDICATION
     Dosage: DAILY DOSE: 80 MILLIGRAM(S)
     Route: 065
  3. LASIX [Concomitant]
     Dosage: DAILY DOSE:  UNKNOWN
     Route: 065
  4. PREVISCAN [Concomitant]
     Indication: DRUG USE FOR UNKNOWN INDICATION
     Dosage: DAILY DOSE:  UNKNOWN
     Route: 065
  5. TEMERIT [Suspect]
     Indication: HYPERTENSION
     Dosage: DAILY DOSE:  UNKNOWN
     Route: 048
  6. TEMERIT [Suspect]
     Dosage: DAILY DOSE:  UNKNOWN
     Route: 048
  7. DAFALGAN [Concomitant]
     Indication: DRUG USE FOR UNKNOWN INDICATION
     Dosage: DAILY DOSE:  UNKNOWN
     Route: 065
  8. MODOPAR [Suspect]
     Indication: PARKINSON'S DISEASE
     Dosage: DAILY DOSE: 500 MILLIGRAM(S)
     Route: 048
  9. FUMAFER [Concomitant]
     Indication: DRUG USE FOR UNKNOWN INDICATION
     Dosage: DAILY DOSE:  UNKNOWN
     Route: 065

REACTIONS (4)
  - FALL [None]
  - HIP FRACTURE [None]
  - ORTHOSTATIC HYPOTENSION [None]
  - SYNCOPE [None]
